FAERS Safety Report 22650014 (Version 1)
Quarter: 2023Q2

REPORT INFORMATION
  Report Type: Spontaneous
  Country: US (occurrence: US)
  Receive Date: 20230628
  Receipt Date: 20230628
  Transmission Date: 20230722
  Serious: Yes (Hospitalization, Other)
  Sender: FDA-Public Use
  Company Number: US-AMNEAL PHARMACEUTICALS-2023-AMRX-02256

PATIENT
  Sex: Male

DRUGS (4)
  1. GABAPENTIN [Suspect]
     Active Substance: GABAPENTIN
     Indication: Myofascial pain syndrome
     Dosage: 300 MILLIGRAM, BID
     Route: 048
  2. CYCLOBENZAPRINE [Concomitant]
     Active Substance: CYCLOBENZAPRINE
     Indication: Myofascial pain syndrome
     Dosage: 10 MG EVERY NIGHT AT BEDTIME
     Route: 048
  3. ACETAMINOPHEN [Concomitant]
     Active Substance: ACETAMINOPHEN
     Indication: Myofascial pain syndrome
     Dosage: 650 MG PER ORAL EVERY 6 HOURS AS NEEDED
     Route: 048
  4. DEXAMETHASONE [Concomitant]
     Active Substance: DEXAMETHASONE
     Indication: Myofascial pain syndrome
     Dosage: 10 MG
     Route: 065

REACTIONS (2)
  - Atrial fibrillation [Recovering/Resolving]
  - Left ventricular hypertrophy [Recovering/Resolving]
